FAERS Safety Report 8764916 (Version 1)
Quarter: 2012Q4

REPORT INFORMATION
  Report Type: 
  Country: US (occurrence: US)
  Receive Date: 20120902
  Receipt Date: 20120902
  Transmission Date: 20130627
  Serious: No
  Sender: FDA-Public Use
  Company Number: US-009507513-1208USA011075

PATIENT

DRUGS (5)
  1. VYTORIN [Suspect]
     Indication: BLOOD CHOLESTEROL INCREASED
     Dosage: 10/20 mg, qd
     Route: 048
     Dates: start: 201208
  2. ZOLOFT [Concomitant]
  3. XANAX [Concomitant]
  4. AXIRON [Concomitant]
  5. CRESTOR [Concomitant]
     Dosage: UNK
     Dates: end: 201208

REACTIONS (3)
  - Rash [Recovering/Resolving]
  - Headache [Recovering/Resolving]
  - Fatigue [Recovering/Resolving]
